FAERS Safety Report 11976826 (Version 2)
Quarter: 2016Q1

REPORT INFORMATION
  Report Type: Report from Study
  Country: US (occurrence: US)
  Receive Date: 20160129
  Receipt Date: 20160303
  Transmission Date: 20160526
  Serious: Yes (Other)
  Sender: FDA-Public Use
  Company Number: US-AMGEN-USASL2016008161

PATIENT
  Age: 88 Year
  Sex: Female

DRUGS (1)
  1. PROLIA [Suspect]
     Active Substance: DENOSUMAB
     Indication: OSTEOPOROSIS POSTMENOPAUSAL
     Dosage: UNK
     Route: 065

REACTIONS (13)
  - Arthralgia [Unknown]
  - Myositis [Unknown]
  - Myalgia [Unknown]
  - Hypoacusis [Unknown]
  - Pain [Unknown]
  - Gait disturbance [Unknown]
  - Groin pain [Unknown]
  - Limb discomfort [Unknown]
  - Spinal laminectomy [Unknown]
  - Pain in extremity [Unknown]
  - Hip arthroplasty [Unknown]
  - Arthritis [Unknown]
  - Bone pain [Unknown]
